FAERS Safety Report 5178257-1 (Version None)
Quarter: 2006Q4

REPORT INFORMATION
  Report Type: 
  Country: None (occurrence: None)
  Receive Date: 20061218
  Receipt Date: 20060810
  Transmission Date: 20070319
  Serious: No
  Sender: FDA-Public Use
  Company Number: US-AMGEN-KDL189656

PATIENT
  Sex: Female
  Weight: 71.7 kg

DRUGS (13)
  1. ENBREL [Suspect]
     Indication: PSORIATIC ARTHROPATHY
     Route: 058
     Dates: start: 20030101
  2. METHOTREXATE [Concomitant]
     Route: 048
     Dates: start: 19890101
  3. SULFASALAZINE [Concomitant]
  4. VIOXX [Concomitant]
     Dates: end: 20041005
  5. LEUCOVORIN CALCIUM [Concomitant]
     Route: 048
  6. TOLMETIN SODIUM [Concomitant]
     Route: 048
  7. EVISTA [Concomitant]
     Route: 048
  8. NEXIUM [Concomitant]
     Route: 048
  9. CALCIUM [Concomitant]
     Route: 048
  10. BENICAR [Concomitant]
     Route: 048
  11. CRESTOR [Concomitant]
     Route: 048
  12. VITAMIN CAP [Concomitant]
  13. TOLECTIN [Concomitant]
     Route: 048

REACTIONS (13)
  - ARTHRALGIA [None]
  - BACK PAIN [None]
  - DIABETES MELLITUS [None]
  - GALLBLADDER DISORDER [None]
  - HEPATIC FIBROSIS [None]
  - HEPATIC STEATOSIS [None]
  - INJECTION SITE PAIN [None]
  - MUSCULOSKELETAL DISCOMFORT [None]
  - MUSCULOSKELETAL STIFFNESS [None]
  - PSORIASIS [None]
  - ROTATOR CUFF SYNDROME [None]
  - SKIN DISORDER [None]
  - STRESS [None]
